FAERS Safety Report 8167207-1 (Version None)
Quarter: 2012Q1

REPORT INFORMATION
  Report Type: 
  Country: None (occurrence: None)
  Receive Date: 20120221
  Receipt Date: 20120209
  Transmission Date: 20120608
  Serious: Yes (Other)
  Sender: FDA-Public Use
  Company Number: AUR-APL-2012-00815

PATIENT
  Sex: Female

DRUGS (5)
  1. ZINC (ZINC) [Suspect]
     Indication: PRODUCT USED FOR UNKNOWN INDICATION
  2. CIPRO [Suspect]
     Indication: PRODUCT USED FOR UNKNOWN INDICATION
  3. MACRODANTIN [Suspect]
     Indication: PRODUCT USED FOR UNKNOWN INDICATION
  4. SULFUR (SULFUR) [Suspect]
     Indication: PRODUCT USED FOR UNKNOWN INDICATION
  5. AMOXICILLIN [Suspect]
     Indication: PRODUCT USED FOR UNKNOWN INDICATION

REACTIONS (1)
  - DRUG HYPERSENSITIVITY [None]
